FAERS Safety Report 25266917 (Version 1)
Quarter: 2025Q2

REPORT INFORMATION
  Report Type: Spontaneous
  Country: US (occurrence: US)
  Receive Date: 20250505
  Receipt Date: 20250505
  Transmission Date: 20250717
  Serious: Yes (Other)
  Sender: BEIGENE
  Company Number: US-BEIGENE-BGN-2025-006913

PATIENT
  Age: 75 Year

DRUGS (1)
  1. BRUKINSA [Suspect]
     Active Substance: ZANUBRUTINIB
     Indication: Chronic lymphocytic leukaemia

REACTIONS (7)
  - Chronic kidney disease [Unknown]
  - Blood uric acid abnormal [Unknown]
  - Neutrophil count decreased [Unknown]
  - Anaemia [Unknown]
  - Night sweats [Unknown]
  - Asthenia [Unknown]
  - Dizziness [Unknown]
